FAERS Safety Report 24169276 (Version 2)
Quarter: 2024Q3

REPORT INFORMATION
  Report Type: Report from Study
  Country: CA (occurrence: CA)
  Receive Date: 20240802
  Receipt Date: 20240819
  Transmission Date: 20241016
  Serious: Yes (Life-Threatening)
  Sender: OTSUKA
  Company Number: CA-OTSUKA-2024_013624

PATIENT
  Sex: Female

DRUGS (3)
  1. BREXPIPRAZOLE [Suspect]
     Active Substance: BREXPIPRAZOLE
     Indication: Bipolar disorder
     Dosage: 2 MG
     Route: 065
     Dates: start: 20240503
  2. BREXPIPRAZOLE [Suspect]
     Active Substance: BREXPIPRAZOLE
     Dosage: 1.5 MG
     Route: 065
  3. BREXPIPRAZOLE [Suspect]
     Active Substance: BREXPIPRAZOLE
     Dosage: 2 MG
     Route: 065
     Dates: end: 20240729

REACTIONS (13)
  - Suicidal ideation [Recovered/Resolved]
  - Accommodation disorder [Not Recovered/Not Resolved]
  - Hyporeflexia [Unknown]
  - Fluid retention [Recovered/Resolved]
  - Perioral dermatitis [Recovered/Resolved]
  - Decreased appetite [Recovered/Resolved]
  - Vomiting [Recovered/Resolved]
  - Night sweats [Recovered/Resolved]
  - Fatigue [Recovered/Resolved]
  - Dry mouth [Recovered/Resolved]
  - Headache [Recovered/Resolved]
  - Tremor [Not Recovered/Not Resolved]
  - Weight increased [Not Recovered/Not Resolved]

NARRATIVE: CASE EVENT DATE: 20240503
